FAERS Safety Report 12971065 (Version 2)
Quarter: 2016Q4

REPORT INFORMATION
  Report Type: Spontaneous
  Country: US (occurrence: US)
  Receive Date: 20161123
  Receipt Date: 20161128
  Transmission Date: 20170207
  Serious: No
  Sender: FDA-Public Use
  Company Number: US-JAZZ-2016-US-018814

PATIENT

DRUGS (5)
  1. XYREM [Suspect]
     Active Substance: SODIUM OXYBATE
     Indication: NARCOLEPSY
     Dosage: 2.25 G, BID
     Route: 048
     Dates: start: 20160921, end: 20160921
  2. METHYLPHENIDATE. [Concomitant]
     Active Substance: METHYLPHENIDATE
  3. XYREM [Suspect]
     Active Substance: SODIUM OXYBATE
     Indication: CATAPLEXY
     Dosage: 2.25 G, BID
     Route: 048
     Dates: start: 20160923, end: 20160923
  4. VYVANSE [Concomitant]
     Active Substance: LISDEXAMFETAMINE DIMESYLATE
  5. XYREM [Suspect]
     Active Substance: SODIUM OXYBATE
     Dosage: 2.25 G, BID
     Route: 048
     Dates: start: 20160924, end: 20160924

REACTIONS (9)
  - Feeling abnormal [Unknown]
  - Impaired driving ability [Unknown]
  - Dizziness [Unknown]
  - Enuresis [Not Recovered/Not Resolved]
  - Nausea [Unknown]
  - Disorientation [Unknown]
  - Sleep paralysis [Unknown]
  - Asthenia [Unknown]
  - Muscle disorder [Unknown]

NARRATIVE: CASE EVENT DATE: 201609
